FAERS Safety Report 21271299 (Version 6)
Quarter: 2023Q1

REPORT INFORMATION
  Report Type: Other
  Country: US (occurrence: US)
  Receive Date: 20220830
  Receipt Date: 20230208
  Transmission Date: 20230417
  Serious: Yes (Hospitalization, Other)
  Sender: FDA-Public Use
  Company Number: US-GBT-015665

PATIENT
  Age: 10 Year
  Sex: Male

DRUGS (1)
  1. OXBRYTA [Suspect]
     Active Substance: VOXELOTOR
     Indication: Sickle cell disease
     Route: 048

REACTIONS (10)
  - Acute chest syndrome [Unknown]
  - Acute chest syndrome [Recovered/Resolved]
  - Sickle cell anaemia with crisis [Unknown]
  - Lung disorder [Unknown]
  - Wrong technique in product usage process [Unknown]
  - Sickle cell anaemia with crisis [Not Recovered/Not Resolved]
  - Product use complaint [Unknown]
  - Off label use [Unknown]
  - Acute chest syndrome [Recovered/Resolved]
  - Pain [Recovered/Resolved]

NARRATIVE: CASE EVENT DATE: 20220816
